FAERS Safety Report 9162730 (Version 1)
Quarter: 2013Q1

REPORT INFORMATION
  Report Type: Spontaneous
  Country: US (occurrence: None)
  Receive Date: 20130207
  Receipt Date: 20130207
  Transmission Date: 20140127
  Serious: Yes (Hospitalization)
  Sender: FDA-Public Use
  Company Number: 2013SP001717

PATIENT
  Age: 40 Year
  Sex: Female

DRUGS (4)
  1. VANCOMYCIN [Suspect]
     Route: 042
     Dates: start: 20121114, end: 20121130
  2. TAZOCILLINE [Suspect]
     Route: 042
     Dates: start: 20121114, end: 20121130
  3. FRAGMIN [Concomitant]
  4. AUGMENTIN [Concomitant]

REACTIONS (3)
  - Leukopenia [None]
  - Thrombocytopenia [None]
  - Hyperthermia [None]
